FAERS Safety Report 4522177-X (Version None)
Quarter: 2004Q4

REPORT INFORMATION
  Report Type: 
  Country: None (occurrence: None)
  Receive Date: 20041207
  Receipt Date: 20041129
  Transmission Date: 20050328
  Serious: Yes (Other)
  Sender: FDA-Public Use
  Company Number: 2004098856

PATIENT
  Age: 60 Year
  Sex: Male
  Weight: 73.9363 kg

DRUGS (5)
  1. LIPITOR [Suspect]
     Indication: ILL-DEFINED DISORDER
     Dosage: 20 MG (20 MG, 1 IN 1 D), ORAL
     Route: 048
  2. VALPROATE SODIUM [Concomitant]
  3. PHENYTOIN SODIUM (PHENYTOIN SODIUM) [Concomitant]
  4. ACITRETIN (ACITRETIN) [Concomitant]
  5. TRIFLUPERAZINE (TRIFLUPERAZINE) [Concomitant]

REACTIONS (3)
  - CONDITION AGGRAVATED [None]
  - CONVULSION [None]
  - MENTAL STATUS CHANGES [None]
